FAERS Safety Report 9434324 (Version 1)
Quarter: 2013Q3

REPORT INFORMATION
  Report Type: Spontaneous
  Country: US (occurrence: None)
  Receive Date: 20130731
  Receipt Date: 20130731
  Transmission Date: 20140515
  Serious: No
  Sender: FDA-Public Use
  Company Number: None

PATIENT
  Age: 73 Year
  Sex: Female

DRUGS (1)
  1. ARIMIDEX ^ASTRAZENECA^ [Suspect]
     Indication: BREAST CANCER
     Dosage: ARIMIDEX 1MG  QD  ORAL
     Route: 048

REACTIONS (1)
  - Fatigue [None]
